FAERS Safety Report 17610715 (Version 1)
Quarter: 2020Q2

REPORT INFORMATION
  Report Type: Spontaneous
  Country: CN (occurrence: CN)
  Receive Date: 20200401
  Receipt Date: 20200401
  Transmission Date: 20200713
  Serious: Yes (Life-Threatening, Hospitalization, Other)
  Sender: FDA-Public Use
  Company Number: CN-PFIZER INC-2020132768

PATIENT
  Age: 39 Year
  Sex: Female

DRUGS (2)
  1. METHOTREXATE SODIUM. [Suspect]
     Active Substance: METHOTREXATE SODIUM
     Indication: ECTOPIC PREGNANCY
     Dosage: 50 MG, SINGLE
     Route: 030
     Dates: start: 201905
  2. METHOTREXATE SODIUM. [Suspect]
     Active Substance: METHOTREXATE SODIUM
     Dosage: 50 MG, SINGLE
     Route: 030
     Dates: start: 201905

REACTIONS (9)
  - Bone marrow failure [Recovered/Resolved]
  - Mucosal disorder [Recovering/Resolving]
  - Skin injury [Recovering/Resolving]
  - Drug-induced liver injury [Recovering/Resolving]
  - Epistaxis [Recovered/Resolved]
  - Product use in unapproved indication [Unknown]
  - Stevens-Johnson syndrome [Recovering/Resolving]
  - Toxic epidermal necrolysis [Recovering/Resolving]
  - Off label use [Unknown]

NARRATIVE: CASE EVENT DATE: 201905
